FAERS Safety Report 5056596-2 (Version None)
Quarter: 2006Q3

REPORT INFORMATION
  Report Type: 
  Country: None (occurrence: None)
  Receive Date: 20060720
  Receipt Date: 20060718
  Transmission Date: 20061208
  Serious: Yes (Disabling, Other)
  Sender: FDA-Public Use
  Company Number: GB-MERCK-0607GBR00079

PATIENT
  Age: 75 Year
  Sex: Male

DRUGS (3)
  1. TRUSOPT [Suspect]
     Route: 047
     Dates: start: 20060403, end: 20060605
  2. BEZAFIBRATE [Concomitant]
     Route: 048
     Dates: start: 20051208
  3. LATANOPROST [Concomitant]
     Route: 047
     Dates: start: 20050721

REACTIONS (3)
  - ARTHRALGIA [None]
  - DIZZINESS [None]
  - URTICARIA [None]
